FAERS Safety Report 15918585 (Version 1)
Quarter: 2019Q1

REPORT INFORMATION
  Report Type: Spontaneous
  Country: CN (occurrence: CN)
  Receive Date: 20190205
  Receipt Date: 20190205
  Transmission Date: 20190417
  Serious: Yes (Other)
  Sender: FDA-Public Use
  Company Number: CN-BAYER-2019-020417

PATIENT
  Age: 34 Year
  Sex: Female
  Weight: 50 kg

DRUGS (1)
  1. MIRENA [Suspect]
     Active Substance: LEVONORGESTREL
     Indication: INTRA-UTERINE CONTRACEPTIVE DEVICE INSERTION
     Dosage: 20 MCG/24HR, CONT
     Route: 015
     Dates: start: 20170527, end: 20181228

REACTIONS (3)
  - Skin discolouration [Unknown]
  - Amenorrhoea [Unknown]
  - Obesity [Unknown]

NARRATIVE: CASE EVENT DATE: 20181228
